FAERS Safety Report 5283155-9 (Version None)
Quarter: 2007Q1

REPORT INFORMATION
  Report Type: 
  Country: None (occurrence: None)
  Receive Date: 20070327
  Receipt Date: 20070309
  Transmission Date: 20070707
  Serious: Yes (Life-Threatening)
  Sender: FDA-Public Use
  Company Number: DSA_29572_2007

PATIENT
  Age: 72 Year
  Sex: Female

DRUGS (5)
  1. ENALAPRIL MALEATE [Suspect]
     Indication: HYPERTENSION
     Dosage: 5 MG QD PO
     Route: 048
     Dates: start: 20050406, end: 20070128
  2. METFORMIN HCL [Suspect]
     Indication: DIABETES MELLITUS
     Dosage: 500 MG Q DAY PO
     Route: 048
     Dates: start: 20050406, end: 20070128
  3. CANRENONE [Suspect]
     Indication: HYPERTENSION
     Dosage: 50 MG Q DAY PO
     Route: 048
     Dates: start: 20050406, end: 20070128
  4. LANOXIN [Concomitant]
  5. LASIX [Concomitant]

REACTIONS (7)
  - BLOOD POTASSIUM INCREASED [None]
  - BRADYCARDIA [None]
  - HAEMODIALYSIS [None]
  - METABOLIC ACIDOSIS [None]
  - OVERDOSE [None]
  - RENAL FAILURE ACUTE [None]
  - RHYTHM IDIOVENTRICULAR [None]
